FAERS Safety Report 4530745-4 (Version None)
Quarter: 2004Q4

REPORT INFORMATION
  Report Type: 
  Country: None (occurrence: None)
  Receive Date: 20041216
  Receipt Date: 20041203
  Transmission Date: 20050328
  Serious: Yes (Congenital Anomaly)
  Sender: FDA-Public Use
  Company Number: TNZES200400133

PATIENT

DRUGS (3)
  1. INNOHEP [Suspect]
     Indication: ANTIPHOSPHOLIPID SYNDROME
     Dosage: 10500 IU
     Route: 015
     Dates: start: 20040218, end: 20041030
  2. ADIRO (ACETYLSALICYLIC ACID) [Concomitant]
  3. LACTOFERRINA (IRON SUCCINYL-PROTEIN COMPLEX) [Concomitant]

REACTIONS (2)
  - DRUG EXPOSURE DURING PREGNANCY [None]
  - POLYDACTYLY [None]
